FAERS Safety Report 11911657 (Version 4)
Quarter: 2017Q1

REPORT INFORMATION
  Report Type: Report from Study
  Country: US (occurrence: US)
  Receive Date: 20160112
  Receipt Date: 20170203
  Transmission Date: 20170428
  Serious: Yes (Death, Hospitalization, Other)
  Sender: FDA-Public Use
  Company Number: US-ARIAD PHARMACEUTICALS, INC-2015US005526

PATIENT
  Age: 64 Year
  Sex: Female

DRUGS (13)
  1. ICLUSIG [Suspect]
     Active Substance: PONATINIB
     Dosage: 30 MG, QOD
     Route: 048
     Dates: start: 20150909
  2. ICLUSIG [Suspect]
     Active Substance: PONATINIB
     Dosage: 30 MG, QD
     Route: 048
     Dates: start: 20151201
  3. ICLUSIG [Suspect]
     Active Substance: PONATINIB
     Dosage: 45 MG, QD
     Route: 048
     Dates: start: 20160415, end: 20160708
  4. ICLUSIG [Suspect]
     Active Substance: PONATINIB
     Dosage: 30 MG, QD
     Route: 048
     Dates: start: 20161115
  5. ICLUSIG [Suspect]
     Active Substance: PONATINIB
     Dosage: 15 MG, QOD
     Route: 048
     Dates: start: 20150909
  6. ICLUSIG [Suspect]
     Active Substance: PONATINIB
     Indication: CHRONIC MYELOID LEUKAEMIA
     Dosage: 30 MG, QD
     Route: 048
     Dates: start: 20150902
  7. ICLUSIG [Suspect]
     Active Substance: PONATINIB
     Dosage: 45 MG, QOD
     Route: 048
     Dates: start: 20160404
  8. HYDREA [Suspect]
     Active Substance: HYDROXYUREA
     Indication: CHRONIC MYELOID LEUKAEMIA
     Dosage: UNK
     Dates: start: 201607
  9. ICLUSIG [Suspect]
     Active Substance: PONATINIB
     Dosage: 30 MG, QD
     Route: 048
     Dates: start: 20151009, end: 20151027
  10. ICLUSIG [Suspect]
     Active Substance: PONATINIB
     Dosage: 30 MG, QOD
     Route: 048
     Dates: start: 20160404
  11. OMACETAXINE [Suspect]
     Active Substance: OMACETAXINE
     Indication: CHRONIC MYELOID LEUKAEMIA
     Dosage: 1.25 MG / M(2); BID
     Dates: start: 20160715
  12. VELCADE [Suspect]
     Active Substance: BORTEZOMIB
     Indication: CHRONIC MYELOID LEUKAEMIA
     Dosage: 1 MG / M(2); WEEKLY
     Dates: start: 20161115
  13. DASATINIB [Suspect]
     Active Substance: DASATINIB
     Indication: CHRONIC MYELOID LEUKAEMIA
     Dosage: 20 MG, QD
     Dates: start: 20161115

REACTIONS (19)
  - Pain in extremity [Unknown]
  - Supraventricular tachycardia [Unknown]
  - Chest pain [Recovered/Resolved]
  - Febrile neutropenia [Unknown]
  - Fatigue [Not Recovered/Not Resolved]
  - Neoplasm progression [Unknown]
  - Escherichia bacteraemia [Unknown]
  - Clostridium difficile infection [Unknown]
  - Pancytopenia [Unknown]
  - Spontaneous haematoma [Unknown]
  - Muscular weakness [Unknown]
  - Death [Fatal]
  - Chemotherapy [Recovered/Resolved]
  - Chronic myeloid leukaemia recurrent [Not Recovered/Not Resolved]
  - Cerebral haemorrhage [Unknown]
  - Malaise [Not Recovered/Not Resolved]
  - Immunodeficiency [Not Recovered/Not Resolved]
  - Drug ineffective [Not Recovered/Not Resolved]
  - Muscle spasms [Unknown]

NARRATIVE: CASE EVENT DATE: 2015
